FAERS Safety Report 9633147 (Version 1)
Quarter: 2013Q4

REPORT INFORMATION
  Report Type: Spontaneous
  Country: US (occurrence: US)
  Receive Date: 20131020
  Receipt Date: 20131020
  Transmission Date: 20140711
  Serious: No
  Sender: FDA-Public Use
  Company Number: US-009507513-1310USA007647

PATIENT
  Age: 63 Year
  Sex: Male

DRUGS (1)
  1. NASONEX [Suspect]
     Indication: HYPERSENSITIVITY
     Dosage: 2 SPRAYS IN EACH NOSTROL DAILY
     Route: 045
     Dates: start: 200810

REACTIONS (3)
  - Nasal congestion [Recovered/Resolved]
  - Product quality issue [Unknown]
  - Drug dose omission [Unknown]
